FAERS Safety Report 4404287-0 (Version None)
Quarter: 2004Q3

REPORT INFORMATION
  Report Type: 
  Country: None (occurrence: None)
  Receive Date: 20040713
  Receipt Date: 20040630
  Transmission Date: 20050211
  Serious: Yes (Other)
  Sender: FDA-Public Use
  Company Number: 200410516BCA

PATIENT
  Age: 34 Year
  Sex: Female

DRUGS (41)
  1. PLASBUMIN-5 [Suspect]
     Dosage: ONCE, INTRAVENOUS
     Route: 042
     Dates: start: 19890103
  2. PLASBUMIN-5 [Suspect]
     Dosage: ONCE, INTRAVENOUS
     Route: 042
     Dates: start: 19890106
  3. PLASBUMIN-5 [Suspect]
  4. RED BLOOD CELLS [Suspect]
     Dosage: ONCE, INTRAVENOUS
     Route: 042
     Dates: start: 19890102
  5. PLATELETS [Suspect]
     Dosage: ONCE, INTRAVENOUS
     Route: 042
     Dates: start: 19890102
  6. FFP (A+) (PLASMA PROTEIN FRACTION (HUMAN)) [Suspect]
     Dosage: ONCE, INTRAVENOUS
     Route: 042
     Dates: start: 19890102
  7. FFP (A+) (PLASMA PROTEIN FRACTION (HUMAN)) [Suspect]
  8. FFP (A+) (PLASMA PROTEIN FRACTION (HUMAN)) [Suspect]
  9. FFP (A+) (PLASMA PROTEIN FRACTION (HUMAN)) [Suspect]
  10. FFP (A+) (PLASMA PROTEIN FRACTION (HUMAN)) [Suspect]
  11. FFP (A+) (PLASMA PROTEIN FRACTION (HUMAN)) [Suspect]
  12. RBC (A+) (RED BLOOD CELLS) [Suspect]
     Dosage: INTRAVENOUS
     Route: 042
     Dates: start: 19890102
  13. RBC (A+) (RED BLOOD CELLS) [Suspect]
  14. RBC (A+) (RED BLOOD CELLS) [Suspect]
  15. RBC (A+) (RED BLOOD CELLS) [Suspect]
  16. RBC (A+) (RED BLOOD CELLS) [Suspect]
  17. RBC (A+) (RED BLOOD CELLS) [Suspect]
  18. RBC (A+) (RED BLOOD CELLS) [Suspect]
  19. RBC (A+) (RED BLOOD CELLS) [Suspect]
  20. RBC (A+) (RED BLOOD CELLS) [Suspect]
  21. RBC (A+) (RED BLOOD CELLS) [Suspect]
  22. RBC (A+) (RED BLOOD CELLS) [Suspect]
  23. RBC (A+) (RED BLOOD CELLS) [Suspect]
  24. RBC (A+) (RED BLOOD CELLS) [Suspect]
  25. RBC (A+) (RED BLOOD CELLS) [Suspect]
  26. RBC (A+) (RED BLOOD CELLS) [Suspect]
  27. RBC (A+) (RED BLOOD CELLS) [Suspect]
  28. RED BLOOD CELLS [Suspect]
     Dosage: ONCE, INTRAVENOUS
     Route: 042
     Dates: start: 19890103
  29. RED BLOOD CELLS [Suspect]
     Dosage: ONCE, INTRAVENOUS
     Route: 042
     Dates: start: 19890104
  30. RED BLOOD CELLS [Suspect]
     Dosage: ONCE, INTRAVENOUS
     Route: 042
     Dates: start: 19890106
  31. RED BLOOD CELLS [Suspect]
  32. RED BLOOD CELLS [Suspect]
  33. RED BLOOD CELLS [Suspect]
  34. RED BLOOD CELLS [Suspect]
  35. RED BLOOD CELLS [Suspect]
  36. STP (AB+) (PLASMA) [Suspect]
     Dosage: ONCE, INTRAVENOUS
     Route: 042
     Dates: start: 19890102
  37. STP (AB+) (PLASMA) [Suspect]
  38. STP (AB+) (PLASMA) [Suspect]
  39. STP (AB+) (PLASMA) [Suspect]
  40. STP (AB-) (PLASMA) [Suspect]
     Dosage: ONCE, INTRAVENOUS
     Route: 042
     Dates: start: 19890102
  41. STP (A+) (PLASMA) [Suspect]
     Dosage: ONCE, INTRAVENOUS
     Route: 042
     Dates: start: 19890102

REACTIONS (2)
  - HEPATITIS C ANTIBODY POSITIVE [None]
  - INDIRECT INFECTION TRANSMISSION [None]
